FAERS Safety Report 8092753-9 (Version None)
Quarter: 2012Q1

REPORT INFORMATION
  Report Type: 
  Country: None (occurrence: None)
  Receive Date: 20120128
  Receipt Date: 20110805
  Transmission Date: 20120608
  Serious: No
  Sender: FDA-Public Use
  Company Number: US-ABBOTT-11P-163-0844139-00

PATIENT
  Sex: Female
  Weight: 70.824 kg

DRUGS (5)
  1. PROZAC [Concomitant]
     Indication: DEPRESSION
  2. HUMIRA [Suspect]
  3. CRESTOR [Concomitant]
     Indication: BLOOD CHOLESTEROL INCREASED
  4. HUMIRA [Suspect]
     Indication: PSORIASIS
     Dosage: 80MG LOADING DOSE DAY1
     Route: 058
     Dates: start: 20110601, end: 20110601
  5. EXFORGE [Concomitant]
     Indication: HYPERTENSION
     Dosage: 5/160MG

REACTIONS (1)
  - PSORIASIS [None]
